FAERS Safety Report 12114871 (Version 2)
Quarter: 2016Q4

REPORT INFORMATION
  Report Type: Report from Study
  Country: US (occurrence: US)
  Receive Date: 20160225
  Receipt Date: 20161005
  Transmission Date: 20170206
  Serious: Yes (Other)
  Sender: FDA-Public Use
  Company Number: US-GILEAD-2016-0200299

PATIENT
  Age: 88 Year
  Sex: Female

DRUGS (2)
  1. SEPTRA DS [Suspect]
     Active Substance: SULFAMETHOXAZOLE\TRIMETHOPRIM
     Indication: CELLULITIS
     Route: 065
  2. AMBRISENTAN [Suspect]
     Active Substance: AMBRISENTAN
     Indication: PRODUCT USED FOR UNKNOWN INDICATION
     Dosage: 5 MG, QD
     Route: 065
     Dates: start: 20141124

REACTIONS (9)
  - Malaise [Unknown]
  - Urinary tract infection [Unknown]
  - Dehydration [Unknown]
  - Cellulitis [Unknown]
  - Fall [Unknown]
  - Muscular weakness [Unknown]
  - Vomiting [Unknown]
  - Anaemia [Unknown]
  - Drug hypersensitivity [Unknown]

NARRATIVE: CASE EVENT DATE: 201601
